FAERS Safety Report 5324551-0 (Version None)
Quarter: 2007Q2

REPORT INFORMATION
  Report Type: 
  Country: None (occurrence: None)
  Receive Date: 20070514
  Receipt Date: 20070502
  Transmission Date: 20071010
  Serious: Yes (Other)
  Sender: FDA-Public Use
  Company Number: US-PFIZER INC-2007036228

PATIENT
  Sex: Female
  Weight: 68.181 kg

DRUGS (3)
  1. CHANTIX [Suspect]
     Indication: SMOKING CESSATION THERAPY
  2. XANAX [Suspect]
  3. ORTHO EVRA [Concomitant]

REACTIONS (4)
  - ANGER [None]
  - CRYING [None]
  - FRUSTRATION [None]
  - SOMNOLENCE [None]
